FAERS Safety Report 6934171-X (Version None)
Quarter: 2010Q3

REPORT INFORMATION
  Report Type: 
  Country: None (occurrence: None)
  Receive Date: 20100820
  Receipt Date: 20100810
  Transmission Date: 20110219
  Serious: Yes (Other)
  Sender: FDA-Public Use
  Company Number: US-PFIZER INC-2010101244

PATIENT
  Sex: Female
  Weight: 73.016 kg

DRUGS (2)
  1. CHANTIX [Suspect]
     Indication: SMOKING CESSATION THERAPY
     Dosage: 0.5 MG, 1X/DAY
     Route: 048
     Dates: start: 20100805, end: 20100801
  2. CHANTIX [Suspect]
     Dosage: 0.5 MG, 2X/DAY
     Route: 048
     Dates: start: 20100801, end: 20100810

REACTIONS (8)
  - BLISTER [None]
  - EYE SWELLING [None]
  - HYPERAESTHESIA [None]
  - HYPERSENSITIVITY [None]
  - LYMPHADENOPATHY [None]
  - MOBILITY DECREASED [None]
  - PARAESTHESIA [None]
  - RASH PRURITIC [None]
